FAERS Safety Report 6683552-0 (Version None)
Quarter: 2010Q2

REPORT INFORMATION
  Report Type: 
  Country: None (occurrence: None)
  Receive Date: 20100413
  Receipt Date: 20100331
  Transmission Date: 20101027
  Serious: Yes (Hospitalization)
  Sender: FDA-Public Use
  Company Number: 1000013016

PATIENT
  Age: 90 Year
  Sex: Male

DRUGS (4)
  1. CITALOPRAM HYDROBROMIDE [Suspect]
     Indication: DEPRESSION
     Dosage: 10 MG (10 MG, 1 IN 1 D), ORAL
     Route: 048
     Dates: start: 20100216, end: 20100218
  2. PARACETAMOL [Concomitant]
  3. PULMICORT [Concomitant]
  4. TIMOPTOL (0.5 PERCENT) [Concomitant]

REACTIONS (2)
  - BLOOD SODIUM DECREASED [None]
  - FALL [None]
